FAERS Safety Report 14013031 (Version 2)
Quarter: 2017Q4

REPORT INFORMATION
  Report Type: Spontaneous
  Country: US (occurrence: US)
  Receive Date: 20170926
  Receipt Date: 20171002
  Transmission Date: 20180321
  Serious: Yes (Other)
  Sender: FDA-Public Use
  Company Number: US-PFIZER INC-2017410914

PATIENT
  Age: 10 Year
  Sex: Male
  Weight: 30 kg

DRUGS (12)
  1. CLONIDINE. [Suspect]
     Active Substance: CLONIDINE
     Dosage: 6 ML, UNK
     Route: 008
  2. SALINE /00075401/ [Concomitant]
     Active Substance: SODIUM CHLORIDE
     Dosage: UNK
  3. EPINEPHRINE. [Concomitant]
     Active Substance: EPINEPHRINE
     Dosage: 3 ML TEST DOSE OF 1.5% LIDOCAINE WITH 1:200,000 EPINEPHRINE
  4. ROPIVACAINE HYDROCHLORIDE. [Suspect]
     Active Substance: ROPIVACAINE HYDROCHLORIDE
     Indication: LOCAL ANAESTHESIA
     Dosage: 3 ML, BOLUS
     Route: 008
  5. ROPIVACAINE HYDROCHLORIDE. [Suspect]
     Active Substance: ROPIVACAINE HYDROCHLORIDE
     Dosage: 3 ML, BOLUS
     Route: 008
  6. HYDROMORPHONE HYDROCHLORIDE. [Suspect]
     Active Substance: HYDROMORPHONE HYDROCHLORIDE
     Dosage: 0.2 MG, UNK
     Route: 042
  7. HYDROMORPHONE [Concomitant]
     Active Substance: HYDROMORPHONE
     Dosage: 6 ML, UNK
     Route: 008
  8. CLONIDINE. [Suspect]
     Active Substance: CLONIDINE
     Dosage: 3 ML, BOLUS
     Route: 008
  9. LIDOCAINE. [Concomitant]
     Active Substance: LIDOCAINE
     Dosage: 3 ML TEST DOSE OF 1.5% LIDOCAINE WITH 1:200,000 EPINEPHRINE
  10. SEVOFLURANE. [Concomitant]
     Active Substance: SEVOFLURANE
     Indication: INDUCTION OF ANAESTHESIA
     Dosage: UNK
  11. ROPIVACAINE HYDROCHLORIDE. [Suspect]
     Active Substance: ROPIVACAINE HYDROCHLORIDE
     Dosage: 6 ML, UNK
     Route: 008
  12. HYDROMORPHONE HYDROCHLORIDE. [Suspect]
     Active Substance: HYDROMORPHONE HYDROCHLORIDE
     Dosage: 3 ML, BOLUS
     Route: 008

REACTIONS (2)
  - Paraesthesia [Recovered/Resolved]
  - Harlequin syndrome [Recovered/Resolved]
